FAERS Safety Report 5653920-4 (Version None)
Quarter: 2008Q1

REPORT INFORMATION
  Report Type: 
  Country: None (occurrence: None)
  Receive Date: 20080306
  Receipt Date: 20080227
  Transmission Date: 20080703
  Serious: Yes (Hospitalization, Other)
  Sender: FDA-Public Use
  Company Number: PHHO2003ES11166

PATIENT
  Age: 44 Year
  Sex: Female
  Weight: 61 kg

DRUGS (11)
  1. GLEEVEC [Suspect]
     Indication: ACUTE LYMPHOCYTIC LEUKAEMIA
     Dosage: 400 MG, QD
     Route: 048
     Dates: start: 20030819
  2. VINCRISTINE [Suspect]
     Indication: ACUTE LYMPHOCYTIC LEUKAEMIA
     Dosage: 1.5 MG/M2, UNK
     Route: 042
     Dates: start: 20030814, end: 20030821
  3. DAUNORUBICIN HCL [Suspect]
     Indication: ACUTE LYMPHOCYTIC LEUKAEMIA
     Dosage: 60 MG/M2, UNK
     Route: 042
     Dates: start: 20030814, end: 20030821
  4. MITOXANTRONE [Suspect]
     Indication: ACUTE LYMPHOCYTIC LEUKAEMIA
     Dosage: 12 MG/M2, UNK
     Route: 042
     Dates: start: 20030828, end: 20030830
  5. CITARABINA [Suspect]
     Indication: ACUTE LYMPHOCYTIC LEUKAEMIA
     Dosage: 1G/M2/HR
     Route: 042
     Dates: start: 20030831, end: 20030901
  6. CITARABINA [Suspect]
     Dosage: 30 MG, UNK
     Dates: start: 20030814, end: 20030904
  7. METHOTREXATE [Suspect]
     Indication: ACUTE LYMPHOCYTIC LEUKAEMIA
     Dosage: 12 MG, UNK
     Route: 037
     Dates: start: 20030814, end: 20030904
  8. HYDROCORTISONE [Concomitant]
     Indication: ACUTE LYMPHOCYTIC LEUKAEMIA
     Dosage: 70 MG, UNK
     Dates: start: 20030814, end: 20030904
  9. IRRADIATION [Suspect]
  10. CYCLOPHOSPHAMIDE [Suspect]
  11. TB1 [Concomitant]

REACTIONS (3)
  - HAEMATOTOXICITY [None]
  - LEUKOPENIA [None]
  - THROMBOCYTOPENIA [None]
